FAERS Safety Report 4702847-0 (Version None)
Quarter: 2005Q2

REPORT INFORMATION
  Report Type: 
  Country: None (occurrence: None)
  Receive Date: 20050629
  Receipt Date: 20050621
  Transmission Date: 20051028
  Serious: Yes (Hospitalization)
  Sender: FDA-Public Use
  Company Number: PHNU2005PL02383

PATIENT
  Age: 53 Year
  Sex: Female
  Weight: 92 kg

DRUGS (7)
  1. LOCOL [Suspect]
     Indication: CORONARY ANGIOPLASTY
     Dosage: 1 DF, QD
     Route: 048
     Dates: start: 20050520, end: 20050622
  2. SINUGOL [Concomitant]
  3. ACETYLSALICYLIC ACID SRT [Concomitant]
  4. TIENOPRIDINES [Concomitant]
  5. ACE INHIBITOR NOS [Concomitant]
  6. BETA BLOCKING AGENTS [Concomitant]
  7. HEPARIN [Concomitant]

REACTIONS (1)
  - GASTRIC MUCOSAL LESION [None]
